FAERS Safety Report 6020317-7 (Version None)
Quarter: 2008Q4

REPORT INFORMATION
  Report Type: 
  Country: None (occurrence: None)
  Receive Date: 20081223
  Receipt Date: 20081223
  Transmission Date: 20090506
  Serious: No
  Sender: FDA-Public Use
  Company Number: None

PATIENT
  Age: 66 Year
  Sex: Female

DRUGS (1)
  1. FLOVENT HFA [Suspect]
     Dosage: INHALE
     Route: 055
     Dates: start: 20081117, end: 20081204

REACTIONS (2)
  - DEVICE FAILURE [None]
  - MEDICAL DEVICE COMPLICATION [None]
